FAERS Safety Report 4739300-4 (Version None)
Quarter: 2005Q3

REPORT INFORMATION
  Report Type: 
  Country: None (occurrence: None)
  Receive Date: 20050810
  Receipt Date: 20050113
  Transmission Date: 20060218
  Serious: No
  Sender: FDA-Public Use
  Company Number: US-GLAXOSMITHKLINE-A0540541A

PATIENT
  Age: 76 Year
  Sex: Male

DRUGS (4)
  1. PAXIL [Suspect]
     Dosage: 20MG PER DAY
     Route: 048
  2. LIPITOR [Concomitant]
  3. UNITHROID [Concomitant]
  4. CLONAZEPAM [Concomitant]

REACTIONS (1)
  - ABNORMAL DREAMS [None]
